FAERS Safety Report 6974500-4 (Version None)
Quarter: 2010Q3

REPORT INFORMATION
  Report Type: 
  Country: None (occurrence: None)
  Receive Date: 20100909
  Receipt Date: 20100902
  Transmission Date: 20110219
  Serious: Yes (Other)
  Sender: FDA-Public Use
  Company Number: JP-MERCK-1008USA03230

PATIENT
  Age: 80 Year
  Sex: Male

DRUGS (4)
  1. JANUVIA [Suspect]
     Indication: TYPE 2 DIABETES MELLITUS
     Route: 048
     Dates: start: 20100803
  2. ACTOS [Concomitant]
     Route: 065
  3. AMARYL [Suspect]
     Indication: TYPE 2 DIABETES MELLITUS
     Route: 048
     Dates: start: 20100803, end: 20100808
  4. AMARYL [Suspect]
     Route: 048
     Dates: end: 20100802

REACTIONS (1)
  - HYPOGLYCAEMIA [None]
